FAERS Safety Report 6165396-1 (Version None)
Quarter: 2009Q2

REPORT INFORMATION
  Report Type: 
  Country: None (occurrence: None)
  Receive Date: 20090423
  Receipt Date: 20090414
  Transmission Date: 20091009
  Serious: Yes (Other)
  Sender: FDA-Public Use
  Company Number: CA-PFIZER INC-2009198391

PATIENT

DRUGS (1)
  1. DILANTIN [Suspect]
     Dosage: 100 MG, UNK

REACTIONS (1)
  - CONVULSION [None]
